FAERS Safety Report 18509898 (Version 1)
Quarter: 2020Q4

REPORT INFORMATION
  Report Type: Report from Study
  Country: IT (occurrence: IT)
  Receive Date: 20201117
  Receipt Date: 20201117
  Transmission Date: 20210114
  Serious: Yes (Hospitalization, Other)
  Sender: FDA-Public Use
  Company Number: IT-ACCORD-208290

PATIENT
  Age: 65 Year
  Sex: Male

DRUGS (1)
  1. MYCOPHENOLIC ACID. [Suspect]
     Active Substance: MYCOPHENOLIC ACID
     Indication: AUTOIMMUNE HEPATITIS
     Dosage: DECREASED TO 1000 MG/DAY.

REACTIONS (2)
  - COVID-19 [Recovered/Resolved]
  - Off label use [Unknown]
